FAERS Safety Report 13292033 (Version 1)
Quarter: 2017Q1

REPORT INFORMATION
  Report Type: Spontaneous
  Country: CH (occurrence: NL)
  Receive Date: 20170303
  Receipt Date: 20170303
  Transmission Date: 20170428
  Serious: Yes (Other)
  Sender: FDA-Public Use
  Company Number: CH-LPDUSPRD-20170219

PATIENT
  Age: 60 Year
  Sex: Male
  Weight: 83 kg

DRUGS (18)
  1. FUSIDIC ACID [Concomitant]
     Active Substance: FUSIDIC ACID
     Dosage: DOSE UNKNOWN
     Route: 065
  2. FERINJECT [Suspect]
     Active Substance: FERRIC CARBOXYMALTOSE
     Dosage: 500 MG, 1 TOTAL
     Route: 041
     Dates: start: 201512
  3. BETAMETHASONE. [Concomitant]
     Active Substance: BETAMETHASONE
     Dosage: UNKNOWN DOSE
     Route: 065
  4. PALEXIA [Concomitant]
     Active Substance: TAPENTADOL HYDROCHLORIDE
     Dosage: 50MG 1 IN 1
     Route: 048
  5. CALCI CHEW D3 [Concomitant]
     Active Substance: CALCIUM CARBONATE\CHOLECALCIFEROL
     Dosage: 1 DF,500MG
     Route: 048
  6. VENTOLIN INHYDR [Concomitant]
     Dosage: 0.5MG/G,200MCG,4 IN1D
     Route: 065
  7. KETOCONAZOLE. [Concomitant]
     Active Substance: KETOCONAZOLE
     Dosage: UNKNOWN DOSE
     Route: 065
  8. NEXIUM MSR [Concomitant]
     Dosage: 2X DAY, 40MG 1 IN 1 D
     Route: 048
  9. TRIAMCINOLONE [Concomitant]
     Active Substance: TRIAMCINOLONE
     Dosage: 0.1% PER DF
     Route: 065
  10. LYRICA [Concomitant]
     Active Substance: PREGABALIN
     Dosage: 150MG,2 IN 1 D
     Route: 048
  11. ANDROSKAT [Concomitant]
     Dosage: 120 DO 2X D, 2DF
     Route: 065
  12. MAGNESIUM SULFATE. [Concomitant]
     Active Substance: MAGNESIUM SULFATE
     Dosage: 1000MG, 500MG, 2 IN 1D
     Route: 065
  13. NACLOF [Concomitant]
     Dosage: 1 MG/ML , 2
     Route: 050
  14. DIPROLENE HYDROGEL [Concomitant]
     Dosage: 4 DF,4 IN 1 D
     Route: 065
  15. MONOFER [Suspect]
     Active Substance: IRON ISOMALTOSIDE 1000
     Dosage: 100 MG PER 1 DF
     Route: 042
     Dates: start: 2016
  16. FOSTER AEROSOL [Concomitant]
     Dosage: 2X DAY,2DF
     Route: 065
  17. CODEINE [Concomitant]
     Active Substance: CODEINE
     Dosage: 2000MG, 500MG ,4 IN 1 DAY
     Route: 048
  18. NEUPRO [Concomitant]
     Active Substance: ROTIGOTINE
     Dosage: 2MG,24 H
     Route: 065

REACTIONS (2)
  - Inguinal hernia repair [Unknown]
  - Blood creatine phosphokinase increased [Unknown]

NARRATIVE: CASE EVENT DATE: 201512
